FAERS Safety Report 5241198-5 (Version None)
Quarter: 2007Q1

REPORT INFORMATION
  Report Type: 
  Country: None (occurrence: None)
  Receive Date: 20070220
  Receipt Date: 20070209
  Transmission Date: 20070707
  Serious: Yes (Hospitalization)
  Sender: FDA-Public Use
  Company Number: FR-JNJFOC-20070202839

PATIENT
  Age: 58 Year
  Sex: Female

DRUGS (1)
  1. REMICADE [Suspect]
     Indication: RHEUMATOID ARTHRITIS
     Dosage: THE LATEST INFUSION (28TH) GIVEN ON 15-OCT-2006
     Route: 042

REACTIONS (1)
  - GASTRIC CANCER [None]
